FAERS Safety Report 17153995 (Version 1)
Quarter: 2019Q4

REPORT INFORMATION
  Report Type: Report from Study
  Country: IL (occurrence: IL)
  Receive Date: 20191213
  Receipt Date: 20191213
  Transmission Date: 20200122
  Serious: Yes (Death, Other)
  Sender: FDA-Public Use
  Company Number: IL-TAKEDA-2019TUS070762

PATIENT
  Age: 38 Year
  Sex: Male

DRUGS (1)
  1. BRIGATINIB [Suspect]
     Active Substance: BRIGATINIB
     Indication: NON-SMALL CELL LUNG CANCER
     Dosage: 180 MILLIGRAM, QD
     Route: 048
     Dates: start: 201908, end: 201911

REACTIONS (1)
  - Non-small cell lung cancer [Fatal]

NARRATIVE: CASE EVENT DATE: 201911
